FAERS Safety Report 11501202 (Version 1)
Quarter: 2015Q3

REPORT INFORMATION
  Report Type: Spontaneous
  Country: US (occurrence: US)
  Receive Date: 20150903
  Receipt Date: 20150903
  Transmission Date: 20151125
  Serious: No
  Sender: FDA-Public Use
  Company Number: US-ELI_LILLY_AND_COMPANY-US200907005797

PATIENT
  Sex: Male

DRUGS (6)
  1. HUMAN GROWTH HORMONE [Concomitant]
  2. ALDACTONE [Concomitant]
     Active Substance: SPIRONOLACTONE
     Dosage: 25 MG, 2/D
  3. LANTUS [Concomitant]
     Active Substance: INSULIN GLARGINE
     Dosage: 200 U, 2/D
  4. GLUCOPHAGE [Concomitant]
     Active Substance: METFORMIN HYDROCHLORIDE
  5. ACTOS [Concomitant]
     Active Substance: PIOGLITAZONE HYDROCHLORIDE
  6. HUMALOG [Suspect]
     Active Substance: INSULIN LISPRO
     Dosage: UNK, AS NEEDED

REACTIONS (3)
  - Weight increased [Unknown]
  - Blood glucose increased [Unknown]
  - Insulin resistance [Unknown]
